FAERS Safety Report 6275742-6 (Version None)
Quarter: 2009Q3

REPORT INFORMATION
  Report Type: 
  Country: None (occurrence: None)
  Receive Date: 20090721
  Receipt Date: 20090715
  Transmission Date: 20100115
  Serious: Yes (Death)
  Sender: FDA-Public Use
  Company Number: PHHY2009CH29228

PATIENT

DRUGS (3)
  1. MIOCHOL [Suspect]
     Dosage: 0.36 UG/ML
  2. MIOCHOL [Suspect]
     Dosage: 3.6 UG/ML
  3. MIOCHOL [Suspect]
     Dosage: 18 UG/ML

REACTIONS (1)
  - CARDIAC ARREST [None]
